FAERS Safety Report 5600982-6 (Version None)
Quarter: 2008Q1

REPORT INFORMATION
  Report Type: 
  Country: None (occurrence: None)
  Receive Date: 20080118
  Receipt Date: 20080104
  Transmission Date: 20080703
  Serious: Yes (Death)
  Sender: FDA-Public Use
  Company Number: 2008001006

PATIENT
  Age: 31 Year
  Sex: Male

DRUGS (3)
  1. DEXTROMETHORPHAN HYDROBROMIDE [Suspect]
     Dosage: UNSPECIFIED, ORAL
     Route: 048
  2. ALPRAZOLAM [Suspect]
     Dosage: UNSPECIFIED, ORAL
     Route: 048
  3. ETHANOL (ETHANOL) [Suspect]
     Dosage: UNSPECIFIED, ORAL
     Route: 048

REACTIONS (4)
  - CARDIAC ARREST [None]
  - DRUG TOXICITY [None]
  - INTENTIONAL DRUG MISUSE [None]
  - RESPIRATORY ARREST [None]
